FAERS Safety Report 6178409-8 (Version None)
Quarter: 2009Q2

REPORT INFORMATION
  Report Type: 
  Country: None (occurrence: None)
  Receive Date: 20090504
  Receipt Date: 20090424
  Transmission Date: 20091009
  Serious: Yes (Other)
  Sender: FDA-Public Use
  Company Number: ME-ABBOTT-09P-304-0569956-00

PATIENT
  Sex: Female
  Weight: 90 kg

DRUGS (5)
  1. SEVOFLURANE [Suspect]
     Indication: GENERAL ANAESTHESIA
     Dosage: 1.5-0.8% VOLUME
     Route: 055
     Dates: start: 20090213, end: 20090213
  2. ROCURONIUM BROMIDE [Concomitant]
     Indication: GENERAL ANAESTHESIA
     Dates: start: 20090213, end: 20090213
  3. FENTANYL [Concomitant]
     Indication: GENERAL ANAESTHESIA
     Dates: start: 20090213, end: 20090213
  4. OXYGEN [Concomitant]
     Indication: GENERAL ANAESTHESIA
     Dates: start: 20090213, end: 20090213
  5. N2O [Concomitant]
     Indication: GENERAL ANAESTHESIA
     Dates: start: 20090213, end: 20090213

REACTIONS (6)
  - BRONCHOSPASM [None]
  - CENTRAL VENOUS PRESSURE INCREASED [None]
  - ELECTROCARDIOGRAM ST SEGMENT DEPRESSION [None]
  - HYPOTENSION [None]
  - RASH PAPULAR [None]
  - TACHYCARDIA [None]
